FAERS Safety Report 7403094-4 (Version None)
Quarter: 2011Q2

REPORT INFORMATION
  Report Type: 
  Country: None (occurrence: None)
  Receive Date: 20110408
  Receipt Date: 20110324
  Transmission Date: 20111010
  Serious: Yes (Death, Hospitalization)
  Sender: FDA-Public Use
  Company Number: PL-GENENTECH-313056

PATIENT
  Sex: Male
  Weight: 70 kg

DRUGS (3)
  1. CLADRIBINE [Suspect]
     Indication: CHRONIC LYMPHOCYTIC LEUKAEMIA
     Dosage: 10 MG, 3/MONTH
     Route: 042
     Dates: start: 20101204
  2. CYCLOPHOSPHAMIDE [Suspect]
     Indication: CHRONIC LYMPHOCYTIC LEUKAEMIA
     Dosage: 530 MG, 3/MONTH
     Route: 042
     Dates: start: 20101204
  3. RITUXIMAB [Suspect]
     Indication: CHRONIC LYMPHOCYTIC LEUKAEMIA
     Dosage: 1065 MG, 1/MONTH
     Route: 042
     Dates: start: 20101203

REACTIONS (3)
  - NEUTROPENIA [None]
  - FEBRILE NEUTROPENIA [None]
  - BRONCHOPNEUMONIA [None]
